FAERS Safety Report 20764018 (Version 3)
Quarter: 2023Q1

REPORT INFORMATION
  Report Type: Report from Study
  Country: BR (occurrence: BR)
  Receive Date: 20220428
  Receipt Date: 20230316
  Transmission Date: 20230417
  Serious: Yes (Other)
  Sender: FDA-Public Use
  Company Number: BR-JNJFOC-20220440884

PATIENT
  Age: 51 Year
  Sex: Female
  Weight: 54 kg

DRUGS (12)
  1. INFLIXIMAB [Suspect]
     Active Substance: INFLIXIMAB
     Indication: Crohn^s disease
     Route: 041
     Dates: start: 20150101
  2. INFLIXIMAB [Suspect]
     Active Substance: INFLIXIMAB
     Indication: Crohn^s disease
     Route: 041
     Dates: start: 2015
  3. ZELMAC [Suspect]
     Active Substance: TEGASEROD
     Indication: Product used for unknown indication
     Route: 065
  4. AMITIZA [Suspect]
     Active Substance: LUBIPROSTONE
     Indication: Product used for unknown indication
     Route: 065
  5. PROMETHAZINE HYDROCHLORIDE [Concomitant]
     Active Substance: PROMETHAZINE HYDROCHLORIDE
  6. AZATHIOPRINE [Concomitant]
     Active Substance: AZATHIOPRINE
  7. AMITRIPTYLINE [Concomitant]
     Active Substance: AMITRIPTYLINE
     Indication: Pain
  8. LEVOTHYROXINE [Concomitant]
     Active Substance: LEVOTHYROXINE
  9. ESTRADIOL [Concomitant]
     Active Substance: ESTRADIOL
  10. PRUCALOPRIDE SUCCINATE [Concomitant]
     Active Substance: PRUCALOPRIDE SUCCINATE
  11. NATURETIN [Concomitant]
     Active Substance: BENDROFLUMETHIAZIDE
  12. HYDROCHLOROTHIAZIDE [Concomitant]
     Active Substance: HYDROCHLOROTHIAZIDE

REACTIONS (25)
  - Cutaneous lupus erythematosus [Unknown]
  - Gastrointestinal necrosis [Unknown]
  - Intestinal ulcer [Unknown]
  - Intestinal obstruction [Unknown]
  - Hysterectomy [Unknown]
  - Salpingectomy [Unknown]
  - Oophorectomy [Unknown]
  - Taste disorder [Not Recovered/Not Resolved]
  - Tachycardia [Unknown]
  - Bone pain [Unknown]
  - Temperature intolerance [Unknown]
  - Bladder disorder [Unknown]
  - Asthenia [Unknown]
  - Impaired healing [Unknown]
  - Weight decreased [Unknown]
  - Decreased immune responsiveness [Unknown]
  - Somnolence [Unknown]
  - Pyrexia [Recovered/Resolved]
  - Anaemia [Unknown]
  - Urinary tract infection [Unknown]
  - Dizziness [Unknown]
  - Arthralgia [Unknown]
  - Diarrhoea [Unknown]
  - Blood pressure decreased [Unknown]
  - Infusion related reaction [Unknown]

NARRATIVE: CASE EVENT DATE: 20160517
